FAERS Safety Report 19680668 (Version 1)
Quarter: 2021Q3

REPORT INFORMATION
  Report Type: Spontaneous
  Country: DE (occurrence: DE)
  Receive Date: 20210810
  Receipt Date: 20210810
  Transmission Date: 20211014
  Serious: Yes (Other)
  Sender: FDA-Public Use
  Company Number: DE-MYLANLABS-2021M1048863

PATIENT
  Age: 1 Day
  Sex: Male
  Weight: 2.47 kg

DRUGS (2)
  1. BUDESONIDE. [Suspect]
     Active Substance: BUDESONIDE
     Indication: CROHN^S DISEASE
     Dosage: 9 MILLIGRAM, QD
     Route: 064
     Dates: start: 20191229, end: 20200924
  2. CURCUMIN [Concomitant]
     Active Substance: CURCUMIN
     Indication: CROHN^S DISEASE
     Dosage: 120 [MG/D (2X60) ] / 290 [MG/D (2X145) ]/ THERAPY WAS DISCONTINUED INBETWEEN ? NO DETAILS
     Route: 064
     Dates: start: 20191229, end: 20200924

REACTIONS (2)
  - Foetal exposure during pregnancy [Unknown]
  - Small for dates baby [Unknown]

NARRATIVE: CASE EVENT DATE: 20200924
